FAERS Safety Report 6808954-0 (Version None)
Quarter: 2010Q2

REPORT INFORMATION
  Report Type: 
  Country: None (occurrence: None)
  Receive Date: 20100630
  Receipt Date: 20091117
  Transmission Date: 20101027
  Serious: No
  Sender: FDA-Public Use
  Company Number: US-PFIZER INC-2009277773

PATIENT
  Sex: Female
  Weight: 58.97 kg

DRUGS (4)
  1. ALPRAZOLAM [Suspect]
     Indication: ANXIETY
     Dosage: 2 MG, 1X/DAY
  2. LUNESTA [Suspect]
  3. LEXAPRO [Concomitant]
  4. ALPRAZOLAM [Concomitant]
     Dosage: 2 MG, UNK

REACTIONS (2)
  - DRUG EFFECT DECREASED [None]
  - INSOMNIA [None]
